FAERS Safety Report 4340446-3 (Version None)
Quarter: 2004Q2

REPORT INFORMATION
  Report Type: 
  Country: None (occurrence: None)
  Receive Date: 20040414
  Receipt Date: 20040402
  Transmission Date: 20050107
  Serious: Yes (Other)
  Sender: FDA-Public Use
  Company Number: GB-JNJFOC-20040400857

PATIENT
  Age: 17 Year
  Sex: Female

DRUGS (2)
  1. CILEST (NORGESTIMATE/ETHINYL ESTRADIOL) TABLETS [Suspect]
     Indication: MENSTRUAL DISORDER
     Dosage: ORAL
     Route: 048
     Dates: start: 20031118
  2. HERBAL MEDICATION (HERBAL PREPARATION) UNKNOWN [Suspect]

REACTIONS (3)
  - DRUG INTERACTION [None]
  - METRORRHAGIA [None]
  - VAGINAL HAEMORRHAGE [None]
